FAERS Safety Report 6210746-0 (Version None)
Quarter: 2009Q2

REPORT INFORMATION
  Report Type: 
  Country: None (occurrence: None)
  Receive Date: 20090528
  Receipt Date: 20090528
  Transmission Date: 20091009
  Serious: Yes (Hospitalization, Disabling)
  Sender: FDA-Public Use
  Company Number: None

PATIENT
  Age: 56 Year
  Sex: Female
  Weight: 43.9989 kg

DRUGS (1)
  1. IMITREX [Suspect]
     Indication: MIGRAINE
     Dosage: ONE WITH HEADACHE
     Dates: start: 20080601, end: 20090501

REACTIONS (3)
  - CARDIAC DISORDER [None]
  - CHEST PAIN [None]
  - FEELING ABNORMAL [None]
